FAERS Safety Report 10011693 (Version 1)
Quarter: 2014Q1

REPORT INFORMATION
  Report Type: Spontaneous
  Country: US (occurrence: US)
  Receive Date: 20140314
  Receipt Date: 20140314
  Transmission Date: 20141002
  Serious: Yes (Other)
  Sender: FDA-Public Use
  Company Number: US-BEH-2014041026

PATIENT
  Age: 57 Year
  Sex: Female

DRUGS (2)
  1. ZEMAIRA [Suspect]
  2. WARFARIN [Suspect]

REACTIONS (3)
  - Drug interaction [Unknown]
  - International normalised ratio abnormal [Recovered/Resolved]
  - Prothrombin time abnormal [Recovered/Resolved]
